FAERS Safety Report 9101603 (Version 1)
Quarter: 2013Q1

REPORT INFORMATION
  Report Type: Spontaneous
  Country: US (occurrence: None)
  Receive Date: 20130220
  Receipt Date: 20130220
  Transmission Date: 20140127
  Serious: Yes (Other)
  Sender: FDA-Public Use
  Company Number: None

PATIENT
  Age: 54 Year
  Sex: Female
  Weight: 81.65 kg

DRUGS (2)
  1. CYMBALTA [Suspect]
     Indication: ANXIETY
     Route: 048
     Dates: start: 20110301, end: 20130210
  2. CYMBALTA [Suspect]
     Indication: FIBROMYALGIA
     Route: 048
     Dates: start: 20110301, end: 20130210

REACTIONS (12)
  - Influenza like illness [None]
  - Pain [None]
  - Fatigue [None]
  - Drug withdrawal syndrome [None]
  - Tinnitus [None]
  - Paraesthesia [None]
  - Disturbance in attention [None]
  - Night sweats [None]
  - Poor quality sleep [None]
  - Diarrhoea [None]
  - Abdominal discomfort [None]
  - Depression [None]
